FAERS Safety Report 15074258 (Version 1)
Quarter: 2018Q2

REPORT INFORMATION
  Report Type: Spontaneous
  Country: DE (occurrence: DE)
  Receive Date: 20180627
  Receipt Date: 20180627
  Transmission Date: 20180711
  Serious: Yes (Hospitalization)
  Sender: FDA-Public Use
  Company Number: DE-DRREDDYS-GER/GER/18/0100857

PATIENT
  Age: 87 Year
  Sex: Female
  Weight: 62 kg

DRUGS (1)
  1. RAMIPRIL. [Suspect]
     Active Substance: RAMIPRIL
     Indication: PRODUCT USED FOR UNKNOWN INDICATION
     Dosage: 5 MG, 1-0-0-0
     Route: 048

REACTIONS (5)
  - Nausea [Unknown]
  - Dizziness [Unknown]
  - Hypertension [Unknown]
  - Hypertensive emergency [Unknown]
  - Drug dispensing error [Unknown]
